FAERS Safety Report 23599878 (Version 1)
Quarter: 2024Q1

REPORT INFORMATION
  Report Type: Spontaneous
  Country: CN (occurrence: CN)
  Receive Date: 20240306
  Receipt Date: 20240306
  Transmission Date: 20240410
  Serious: Yes (Hospitalization, Other)
  Sender: FDA-Public Use
  Company Number: CN-HALEON-CNCH2024APC011161

PATIENT

DRUGS (8)
  1. IBUPROFEN [Suspect]
     Active Substance: IBUPROFEN
     Indication: Pyrexia
     Dosage: 1 DF, BID
     Route: 048
     Dates: start: 20240125, end: 20240128
  2. IBUPROFEN [Suspect]
     Active Substance: IBUPROFEN
     Indication: Cough
  3. IBUPROFEN [Suspect]
     Active Substance: IBUPROFEN
     Indication: Productive cough
  4. ACETAMINOPHEN\AMANTADINE HYDROCHLORIDE [Suspect]
     Active Substance: ACETAMINOPHEN\AMANTADINE HYDROCHLORIDE
     Indication: Pyrexia
     Dosage: 1 DF, BID
     Route: 048
     Dates: start: 20240125, end: 20240128
  5. ACETAMINOPHEN\AMANTADINE HYDROCHLORIDE [Suspect]
     Active Substance: ACETAMINOPHEN\AMANTADINE HYDROCHLORIDE
     Indication: Cough
  6. ACETAMINOPHEN\AMANTADINE HYDROCHLORIDE [Suspect]
     Active Substance: ACETAMINOPHEN\AMANTADINE HYDROCHLORIDE
     Indication: Productive cough
  7. CEFTRIAXONE SODIUM [Suspect]
     Active Substance: CEFTRIAXONE SODIUM
     Indication: Pneumonia
     Dosage: 2 G, QD
     Route: 041
     Dates: start: 20240128, end: 20240201
  8. CEFTRIAXONE SODIUM [Suspect]
     Active Substance: CEFTRIAXONE SODIUM
     Indication: Infection

REACTIONS (3)
  - Pneumonia [Recovered/Resolved]
  - White blood cell count decreased [Recovered/Resolved]
  - Pulmonary mass [Recovered/Resolved]

NARRATIVE: CASE EVENT DATE: 20240128
